FAERS Safety Report 9346702 (Version 1)
Quarter: 2013Q2

REPORT INFORMATION
  Report Type: Spontaneous
  Country: US (occurrence: US)
  Receive Date: 20130613
  Receipt Date: 20130613
  Transmission Date: 20140414
  Serious: No
  Sender: FDA-Public Use
  Company Number: US-009507513-1305USA014550

PATIENT
  Sex: 0

DRUGS (16)
  1. ZOCOR [Suspect]
  2. METOPROLOL TARTRATE [Concomitant]
     Dosage: 25 MG, BID
     Route: 048
  3. PLAVIX [Concomitant]
     Dosage: 75 MG, QD
     Route: 048
  4. ONE DAILY WOMENS FORMULA [Concomitant]
     Dosage: 1 TABLET, QD
     Route: 048
  5. INDAPAMIDE [Concomitant]
     Dosage: 1.25 MG, QD
     Route: 048
  6. GLYBURIDE (+) METFORMIN HYDROCHLORIDE [Concomitant]
     Dosage: 1.25MG-250 MG TABLET, 2 TABLETS, EVERY MORNING
     Route: 048
  7. GLYBURIDE (+) METFORMIN HYDROCHLORIDE [Concomitant]
     Dosage: 1.25MG-250 MG TABLET, 2 TABLETS EVERY EVENING
     Route: 048
  8. ACETAMINOPHEN (+) HYDROCODONE BITARTRATE [Concomitant]
     Indication: PAIN
     Dosage: 5-500 MG  TABLET TID FOR 30 DAYS
     Route: 048
  9. PROTONIX [Concomitant]
     Dosage: 40 MG, 1 TABLET, QD
     Route: 048
  10. ASPIRIN [Concomitant]
     Dosage: 81 MG, 1 TABLET, QD
     Route: 048
  11. LIPITOR [Concomitant]
     Dosage: 1 TABLET, 20 MG, EVERY EVENING
     Route: 048
  12. XANAX [Concomitant]
     Indication: ANXIETY
     Dosage: 0.25 MG, 1 TABLET EVERY EVENING AS NEEDED FOR ANXIETY/INSOMNIA
     Route: 048
  13. XANAX [Concomitant]
     Indication: INSOMNIA
  14. NORVASC [Concomitant]
     Dosage: 5 MG, 1 TABLET, QD
     Route: 048
  15. AMBIEN [Concomitant]
     Dosage: 5 MG, 1 TABLET, QD, PRN
     Route: 048
  16. TIMOPTIC [Concomitant]
     Dosage: 2 GTT, BID

REACTIONS (6)
  - Myalgia [Unknown]
  - Drug hypersensitivity [Unknown]
  - Drug hypersensitivity [Unknown]
  - Drug hypersensitivity [Unknown]
  - Iodine allergy [Unknown]
  - Contrast media allergy [Unknown]
